FAERS Safety Report 21757906 (Version 1)
Quarter: 2022Q4

REPORT INFORMATION
  Report Type: Spontaneous
  Country: US (occurrence: US)
  Receive Date: 20221221
  Receipt Date: 20221221
  Transmission Date: 20230112
  Serious: No
  Sender: FDA-Public Use
  Company Number: US-CELLTRION INC.-2022US010399

PATIENT

DRUGS (5)
  1. TRUXIMA [Suspect]
     Active Substance: RITUXIMAB-ABBS
     Indication: Follicular lymphoma
     Dosage: 800MG (8X 100MG) 375MG/M2, D1 Q 28 DAYS X 6 CYCLES, THEN MAINTENANCE
     Route: 042
  2. TRUXIMA [Suspect]
     Active Substance: RITUXIMAB-ABBS
     Dosage: 800MG (8X 100MG) 375MG/M2, D1 Q 28 DAYS X 6 CYCLES, THEN MAINTENANCE
     Route: 042
  3. TRUXIMA [Suspect]
     Active Substance: RITUXIMAB-ABBS
     Dosage: 800MG (8X 100MG) 375MG/M2, D1 Q 28 DAYS X 6 CYCLES, THEN MAINTENANCE
     Route: 042
  4. TRUXIMA [Suspect]
     Active Substance: RITUXIMAB-ABBS
     Dosage: 800MG (8X 100MG) 375MG/M2, D1 Q 28 DAYS X 6 CYCLES, THEN MAINTENANCE
     Route: 042
  5. BENDAMUSTINE [Concomitant]
     Active Substance: BENDAMUSTINE
     Dosage: 90MG/M2 D1,2

REACTIONS (2)
  - Product preparation error [Recovered/Resolved]
  - Intercepted product preparation error [Recovered/Resolved]

NARRATIVE: CASE EVENT DATE: 20220205
